FAERS Safety Report 8852957 (Version 4)
Quarter: 2013Q2

REPORT INFORMATION
  Report Type: Spontaneous
  Country: US (occurrence: US)
  Receive Date: 20121022
  Receipt Date: 20130416
  Transmission Date: 20140414
  Serious: Yes (Hospitalization, Other)
  Sender: FDA-Public Use
  Company Number: US-009507513-1205USA04815

PATIENT
  Sex: Female
  Weight: 70.3 kg

DRUGS (5)
  1. FOSAMAX [Suspect]
     Indication: OSTEOPOROSIS
     Dosage: 10 MG, UNK
     Route: 048
     Dates: start: 199601, end: 200201
  2. FOSAMAX [Suspect]
     Dosage: 70 MG, UNK
     Route: 048
     Dates: start: 200201, end: 20080510
  3. ALENDRONATE SODIUM [Suspect]
     Indication: OSTEOPOROSIS
     Dosage: 70 MG, QW
     Route: 048
     Dates: start: 20080818, end: 20100716
  4. PREDNISONE [Concomitant]
     Indication: ADDISON^S DISEASE
     Dosage: UNK
     Dates: start: 1988
  5. FLORINEF [Concomitant]
     Indication: ADDISON^S DISEASE
     Dosage: UNK
     Dates: start: 1988

REACTIONS (32)
  - Intramedullary rod insertion [Recovered/Resolved]
  - Femur fracture [Recovered/Resolved]
  - Femur fracture [Recovered/Resolved]
  - Intramedullary rod insertion [Recovered/Resolved]
  - Arthrotomy [Unknown]
  - Removal of internal fixation [Unknown]
  - Femur fracture [Unknown]
  - Spinal operation [Unknown]
  - Wrist fracture [Recovered/Resolved]
  - Cardiac pacemaker insertion [Unknown]
  - Arrhythmia [Unknown]
  - Bone disorder [Unknown]
  - Foot fracture [Unknown]
  - Foot fracture [Unknown]
  - Bursitis [Unknown]
  - Bursitis [Unknown]
  - Hypertension [Unknown]
  - Osteoarthritis [Unknown]
  - Cardiac failure congestive [Unknown]
  - Anaphylactic reaction [Unknown]
  - Tonsillectomy [Unknown]
  - Appendicectomy [Unknown]
  - Jaw operation [Unknown]
  - Limb operation [Unknown]
  - Knee operation [Unknown]
  - Limb asymmetry [Unknown]
  - Hormone replacement therapy [Unknown]
  - Adverse event [Unknown]
  - Gastrooesophageal reflux disease [Unknown]
  - Back pain [Not Recovered/Not Resolved]
  - Arthralgia [Unknown]
  - Hypersensitivity [Unknown]
